FAERS Safety Report 16185918 (Version 1)
Quarter: 2019Q2

REPORT INFORMATION
  Report Type: Report from Study
  Country: CA (occurrence: CA)
  Receive Date: 20190411
  Receipt Date: 20190411
  Transmission Date: 20190711
  Serious: Yes (Life-Threatening)
  Sender: FDA-Public Use
  Company Number: CA-JNJFOC-20190413169

PATIENT
  Sex: Male

DRUGS (1)
  1. STELARA [Suspect]
     Active Substance: USTEKINUMAB
     Indication: PSORIASIS
     Dosage: STRENGTH = 90 MG
     Route: 058
     Dates: start: 20170319, end: 20190407

REACTIONS (4)
  - Off label use [Unknown]
  - Lung disorder [Not Recovered/Not Resolved]
  - Liver disorder [Not Recovered/Not Resolved]
  - Product use issue [Unknown]
